FAERS Safety Report 17239326 (Version 2)
Quarter: 2020Q1

REPORT INFORMATION
  Report Type: Spontaneous
  Country: US (occurrence: US)
  Receive Date: 20200106
  Receipt Date: 20200109
  Transmission Date: 20200409
  Serious: Yes (Other)
  Sender: FDA-Public Use
  Company Number: US-PFIZER INC-2020000388

PATIENT
  Age: 65 Year
  Sex: Male
  Weight: 125.17 kg

DRUGS (2)
  1. ATORVASTATIN CALCIUM. [Suspect]
     Active Substance: ATORVASTATIN CALCIUM
     Dosage: 80 MG, UNK
  2. ELIQUIS [Suspect]
     Active Substance: APIXABAN
     Dosage: 5 MG, UNK
     Route: 065

REACTIONS (3)
  - Depression [Recovering/Resolving]
  - Schizoaffective disorder [Recovering/Resolving]
  - Anxiety [Recovering/Resolving]
